FAERS Safety Report 9563337 (Version 2)
Quarter: 2013Q4

REPORT INFORMATION
  Report Type: Report from Study
  Country: DE (occurrence: DE)
  Receive Date: 20130927
  Receipt Date: 20131010
  Transmission Date: 20140711
  Serious: Yes (Death)
  Sender: FDA-Public Use
  Company Number: DE-ABBVIE-13P-062-1152339-00

PATIENT
  Age: 82 Year
  Sex: Male

DRUGS (4)
  1. TRENANTONE [Suspect]
     Indication: PROSTATE CANCER
     Dosage: 3 MONTHLY
     Route: 065
     Dates: start: 20120531, end: 20130605
  2. ANTIANDROGENS [Concomitant]
     Indication: PRODUCT USED FOR UNKNOWN INDICATION
     Dates: start: 2013, end: 2013
  3. COUMARIN [Concomitant]
     Indication: PRODUCT USED FOR UNKNOWN INDICATION
  4. ACETYLSALICYLIC ACID [Concomitant]
     Indication: PRODUCT USED FOR UNKNOWN INDICATION

REACTIONS (1)
  - General physical health deterioration [Fatal]
